FAERS Safety Report 9547091 (Version 1)
Quarter: 2013Q3

REPORT INFORMATION
  Report Type: Spontaneous
  Country: CH (occurrence: CH)
  Receive Date: 20130924
  Receipt Date: 20130924
  Transmission Date: 20140515
  Serious: Yes (Hospitalization)
  Sender: FDA-Public Use
  Company Number: PHHY2013CH105179

PATIENT
  Age: 8 Year
  Sex: Male

DRUGS (3)
  1. METHYLPHENIDATE [Suspect]
     Dosage: 60 MG, DAILY
  2. METHYLPHENIDATE [Suspect]
     Dosage: 90 MG, DAILY
  3. METHYLPHENIDATE [Suspect]
     Dosage: 40 MG, TID

REACTIONS (8)
  - Haematuria [Recovered/Resolved]
  - Hypertensive crisis [Recovered/Resolved]
  - Abdominal pain [Recovered/Resolved]
  - Pyrexia [Recovered/Resolved]
  - Vomiting [Recovered/Resolved]
  - Overdose [Recovered/Resolved]
  - Headache [Recovered/Resolved]
  - Drug ineffective [Recovered/Resolved]
